FAERS Safety Report 12579320 (Version 1)
Quarter: 2016Q3

REPORT INFORMATION
  Report Type: Spontaneous
  Country: US (occurrence: US)
  Receive Date: 20160721
  Receipt Date: 20160721
  Transmission Date: 20161109
  Serious: No
  Sender: FDA-Public Use
  Company Number: US-BAYER-2016-142350

PATIENT
  Age: 76 Year
  Sex: Female
  Weight: 62.13 kg

DRUGS (1)
  1. ALEVE [Suspect]
     Active Substance: NAPROXEN SODIUM
     Indication: BACK PAIN
     Dosage: 1 DF, BID
     Route: 048
     Dates: start: 2016, end: 20160716

REACTIONS (3)
  - Faeces discoloured [Recovered/Resolved]
  - Wrong technique in product usage process [None]
  - Product use issue [None]

NARRATIVE: CASE EVENT DATE: 20160716
